FAERS Safety Report 4941289-X (Version None)
Quarter: 2006Q1

REPORT INFORMATION
  Report Type: 
  Country: None (occurrence: None)
  Receive Date: 20060313
  Receipt Date: 20050713
  Transmission Date: 20060701
  Serious: Yes (Hospitalization)
  Sender: FDA-Public Use
  Company Number: US-MERCK-0507USA01782

PATIENT
  Age: 73 Year
  Sex: Female
  Weight: 87 kg

DRUGS (10)
  1. VIOXX [Suspect]
     Indication: ARTHRITIS
     Route: 048
     Dates: start: 20000918, end: 20040908
  2. VIOXX [Suspect]
     Route: 048
     Dates: start: 19990101, end: 20000101
  3. VIOXX [Suspect]
     Indication: BACK PAIN
     Route: 048
     Dates: start: 20000918, end: 20040908
  4. VIOXX [Suspect]
     Route: 048
     Dates: start: 19990101, end: 20000101
  5. ZOCOR [Concomitant]
     Route: 065
     Dates: start: 20001102
  6. XANAX [Concomitant]
     Route: 048
  7. BENICAR [Concomitant]
     Route: 048
  8. AMBIEN [Concomitant]
     Route: 048
     Dates: start: 20000918
  9. SYNTHROID [Concomitant]
     Route: 048
  10. SYNTHROID [Concomitant]
     Route: 048
     Dates: start: 20000918

REACTIONS (10)
  - ANIMAL BITE [None]
  - ARTHRITIS [None]
  - BACK PAIN [None]
  - CEREBROVASCULAR ACCIDENT [None]
  - CHEST PAIN [None]
  - DYSPNOEA EXERTIONAL [None]
  - GOITRE [None]
  - HEADACHE [None]
  - MONARTHRITIS [None]
  - SLEEP APNOEA SYNDROME [None]
